FAERS Safety Report 24690989 (Version 2)
Quarter: 2024Q4

REPORT INFORMATION
  Report Type: Spontaneous
  Country: BR (occurrence: BR)
  Receive Date: 20241203
  Receipt Date: 20241223
  Transmission Date: 20250115
  Serious: No
  Sender: GLENMARK
  Company Number: BR-GLENMARK PHARMACEUTICALS-2024GMK095851

PATIENT

DRUGS (3)
  1. MOMETASONE [Suspect]
     Active Substance: MOMETASONE
     Indication: Rhinitis allergic
     Dosage: 2 DOSAGE FORM, BID 2 JETS IN THE MORNING AND 02 JETS AT NIGHT (UNSPECIFIED HOW MANY JETS IN EACH NOS
     Route: 045
     Dates: start: 2023
  2. MOMETASONE [Suspect]
     Active Substance: MOMETASONE
     Dosage: 2 DOSAGE FORM, 2 SPRAYS IN EACH NOSTRIL AT NIGHT
     Route: 045
     Dates: start: 20241122
  3. FEXOFENADINE [Concomitant]
     Active Substance: FEXOFENADINE HYDROCHLORIDE
     Indication: Rhinitis
     Dosage: 1 DOSAGE FORM, QD  (180 MG 01 TABLET PER DAY, FOR 05 DAYS )
     Route: 065

REACTIONS (3)
  - Rhinitis allergic [Not Recovered/Not Resolved]
  - Condition aggravated [Not Recovered/Not Resolved]
  - Product packaging quantity issue [Unknown]

NARRATIVE: CASE EVENT DATE: 20241121
